FAERS Safety Report 12874059 (Version 1)
Quarter: 2016Q4

REPORT INFORMATION
  Report Type: Spontaneous
  Country: DE (occurrence: DE)
  Receive Date: 20161021
  Receipt Date: 20161021
  Transmission Date: 20170207
  Serious: Yes (Hospitalization)
  Sender: FDA-Public Use
  Company Number: DE-TEVA-701752GER

PATIENT
  Age: 69 Year
  Sex: Male
  Weight: 81.4 kg

DRUGS (1)
  1. VORICONAZOL [Suspect]
     Active Substance: VORICONAZOLE
     Indication: ONYCHOMYCOSIS
     Route: 048
     Dates: start: 20160818, end: 20160822

REACTIONS (10)
  - Hyponatraemia [Recovering/Resolving]
  - Oedema [Recovering/Resolving]
  - Acute kidney injury [Recovering/Resolving]
  - Hepatic function abnormal [Recovering/Resolving]
  - Glomerulonephritis [Recovering/Resolving]
  - Pericardial drainage [Recovering/Resolving]
  - Dialysis [Recovering/Resolving]
  - Pleural effusion [Recovering/Resolving]
  - Dyspnoea [Recovered/Resolved]
  - Pericardial haemorrhage [Recovering/Resolving]

NARRATIVE: CASE EVENT DATE: 201608
